FAERS Safety Report 7205399-9 (Version None)
Quarter: 2010Q4

REPORT INFORMATION
  Report Type: 
  Country: None (occurrence: None)
  Receive Date: 20101231
  Receipt Date: 20101229
  Transmission Date: 20110411
  Serious: Yes (Hospitalization)
  Sender: FDA-Public Use
  Company Number: US-PFIZER INC-2010181497

PATIENT
  Sex: Female
  Weight: 86.168 kg

DRUGS (3)
  1. CHANTIX [Suspect]
     Indication: SMOKING CESSATION THERAPY
     Dosage: UNK
     Route: 048
     Dates: start: 20080101, end: 20080121
  2. PROTONIX [Concomitant]
     Indication: GASTROOESOPHAGEAL REFLUX DISEASE
     Dosage: UNK
  3. PREVACID [Concomitant]
     Dosage: UNK

REACTIONS (2)
  - CEREBROVASCULAR ACCIDENT [None]
  - HEADACHE [None]
